FAERS Safety Report 5134617-6 (Version None)
Quarter: 2006Q4

REPORT INFORMATION
  Report Type: 
  Country: None (occurrence: None)
  Receive Date: 20061025
  Receipt Date: 20061023
  Transmission Date: 20070319
  Serious: Yes (Death)
  Sender: FDA-Public Use
  Company Number: US-GLAXOSMITHKLINE-A0624567A

PATIENT
  Age: 70 Year
  Sex: Male

DRUGS (6)
  1. COREG [Suspect]
     Route: 048
     Dates: start: 20050101
  2. DIABETES MEDICATION [Concomitant]
  3. NITROGLYCERIN [Concomitant]
  4. BLOOD PRESSURE MEDICATION [Concomitant]
  5. UNKNOWN MEDICATION [Concomitant]
  6. NEBULIZER [Concomitant]

REACTIONS (1)
  - CHEST PAIN [None]
